FAERS Safety Report 12864443 (Version 1)
Quarter: 2016Q4

REPORT INFORMATION
  Report Type: Spontaneous
  Country: US (occurrence: US)
  Receive Date: 20161020
  Receipt Date: 20161020
  Transmission Date: 20170207
  Serious: No
  Sender: FDA-Public Use
  Company Number: US-TEVA-703779USA

PATIENT
  Age: 54 Year
  Sex: Female

DRUGS (8)
  1. ARMOUR THYROID [Concomitant]
     Active Substance: THYROID, PORCINE
  2. IBUPROFEN. [Concomitant]
     Active Substance: IBUPROFEN
  3. PROGESTERONE. [Concomitant]
     Active Substance: PROGESTERONE
  4. TIZANIDINE. [Concomitant]
     Active Substance: TIZANIDINE
  5. ZOLPIDEM [Concomitant]
     Active Substance: ZOLPIDEM\ZOLPIDEM TARTRATE
  6. BACLOFEN. [Concomitant]
     Active Substance: BACLOFEN
  7. TYLENOL [Concomitant]
     Active Substance: ACETAMINOPHEN
  8. COPAXONE [Suspect]
     Active Substance: GLATIRAMER ACETATE
     Indication: MULTIPLE SCLEROSIS
     Route: 058
     Dates: start: 20100506

REACTIONS (1)
  - Memory impairment [Unknown]

NARRATIVE: CASE EVENT DATE: 201609
